FAERS Safety Report 15289904 (Version 4)
Quarter: 2018Q4

REPORT INFORMATION
  Report Type: Report from Study
  Country: IT (occurrence: IT)
  Receive Date: 20180817
  Receipt Date: 20181108
  Transmission Date: 20190204
  Serious: Yes (Hospitalization, Other)
  Sender: FDA-Public Use
  Company Number: IT-PFIZER INC-2017239383

PATIENT
  Age: 13 Year
  Sex: Male

DRUGS (19)
  1. VINCRISTINE SULFATE. [Suspect]
     Active Substance: VINCRISTINE SULFATE
     Indication: ACUTE LYMPHOCYTIC LEUKAEMIA
     Dosage: 2 MG, CYCLIC
     Route: 042
     Dates: start: 20170123
  2. L-ASPARAGINASE [Suspect]
     Active Substance: ASPARAGINASE
     Indication: ACUTE LYMPHOCYTIC LEUKAEMIA
     Dosage: 29400 IU, CYCLIC
     Route: 042
     Dates: start: 20170126, end: 20170202
  3. ETOPOSIDE. [Concomitant]
     Active Substance: ETOPOSIDE
     Route: 065
  4. GLIVEC [Suspect]
     Active Substance: IMATINIB MESYLATE
     Indication: ACUTE LYMPHOCYTIC LEUKAEMIA
     Dosage: 300 OT, UNK
     Route: 048
     Dates: start: 20160721
  5. GLIVEC [Suspect]
     Active Substance: IMATINIB MESYLATE
     Indication: SYSTEMIC SCLERODERMA
     Dosage: 500 MG AND 400MG ALTERNATE DAYS
     Route: 048
     Dates: start: 20170102
  6. ANTRA /00661201/ [Concomitant]
     Active Substance: OMEPRAZOLE
     Dosage: 40 MG, UNK
     Route: 042
  7. PERFALGAN [Concomitant]
     Active Substance: ACETAMINOPHEN
     Dosage: 500 MG, UNK
     Route: 042
  8. IG VENA [Concomitant]
     Active Substance: HUMAN IMMUNOGLOBULIN G
     Dosage: 10 G, UNK
     Route: 065
  9. DESAMETASONE [Concomitant]
     Active Substance: DEXAMETHASONE
     Route: 065
  10. ADRIBLASTINA [Suspect]
     Active Substance: DOXORUBICIN HYDROCHLORIDE
     Indication: ACUTE LYMPHOCYTIC LEUKAEMIA
     Dosage: 44.1 MG, CYCLIC
     Route: 042
     Dates: start: 20170123
  11. BACTRIM [Concomitant]
     Active Substance: SULFAMETHOXAZOLE\TRIMETHOPRIM
     Dosage: UNK
     Route: 065
  12. KCL-RETARD [Concomitant]
     Active Substance: POTASSIUM CHLORIDE
     Dosage: 4 DF, 1X/DAY
     Route: 065
  13. MYCOSTATIN [Concomitant]
     Active Substance: NYSTATIN
     Dosage: UNK
     Route: 065
  14. METHYLPREDNISOLONE. [Concomitant]
     Active Substance: METHYLPREDNISOLONE
     Route: 065
  15. CEFTAZIDIME. [Concomitant]
     Active Substance: CEFTAZIDIME
     Route: 065
  16. PEGASPARGASE [Concomitant]
     Active Substance: PEGASPARGASE
     Route: 065
  17. DECADRON [Concomitant]
     Active Substance: DEXAMETHASONE
     Dosage: UNK
     Route: 042
  18. ERWINIASE [Suspect]
     Active Substance: ASPARAGINASE
     Route: 065
  19. TRIMETON [Concomitant]
     Active Substance: CHLORPHENIRAMINE MALEATE
     Dosage: 1 DF, DAILY
     Route: 042

REACTIONS (2)
  - Thrombocytopenia [Recovering/Resolving]
  - Lipase increased [Unknown]

NARRATIVE: CASE EVENT DATE: 20170130
